FAERS Safety Report 5288399-8 (Version None)
Quarter: 2007Q2

REPORT INFORMATION
  Report Type: 
  Country: None (occurrence: None)
  Receive Date: 20070405
  Receipt Date: 20070326
  Transmission Date: 20071010
  Serious: Yes (Hospitalization)
  Sender: FDA-Public Use
  Company Number: 2007CG00497

PATIENT
  Age: 53 Year
  Sex: Female
  Weight: 60 kg

DRUGS (2)
  1. ZOMIG [Suspect]
     Indication: HEADACHE
     Route: 048
     Dates: end: 20061212
  2. SEROPLEX [Concomitant]
     Route: 048
     Dates: start: 20060601

REACTIONS (3)
  - DRUG ABUSER [None]
  - HEADACHE [None]
  - MALAISE [None]
